FAERS Safety Report 12810281 (Version 3)
Quarter: 2016Q4

REPORT INFORMATION
  Report Type: Spontaneous
  Country: GB (occurrence: GB)
  Receive Date: 20161005
  Receipt Date: 20161109
  Transmission Date: 20170207
  Serious: Yes (Death)
  Sender: FDA-Public Use
  Company Number: GB-AUROBINDO-AUR-APL-2016-11985

PATIENT
  Age: 68 Year
  Sex: Female
  Weight: 51 kg

DRUGS (15)
  1. TIOTROPIUM [Concomitant]
     Active Substance: TIOTROPIUM
     Indication: RESPIRATORY DISORDER
     Dosage: MORNING
     Route: 065
     Dates: start: 20160823
  2. QUININE SULFATE. [Concomitant]
     Active Substance: QUININE SULFATE
     Indication: PRODUCT USED FOR UNKNOWN INDICATION
     Dosage: 300 MG, ONCE A DAY AT NIGHT
     Route: 065
  3. RIFAMPICIN [Concomitant]
     Active Substance: RIFAMPIN
     Indication: MYCOBACTERIUM AVIUM COMPLEX INFECTION
     Route: 065
     Dates: end: 20160819
  4. TRIMETHOPRIM. [Concomitant]
     Active Substance: TRIMETHOPRIM
     Indication: RESPIRATORY DISORDER
     Dosage: 200 MG, TWO TIMES A DAY
     Route: 065
  5. AZITHROMYCIN 500 MG [Suspect]
     Active Substance: AZITHROMYCIN ANHYDROUS
     Indication: MYCOBACTERIUM AVIUM COMPLEX INFECTION
     Dosage: 500 MG, UNK
     Route: 048
     Dates: start: 20160823, end: 20160827
  6. CIPROFLOXACIN. [Concomitant]
     Active Substance: CIPROFLOXACIN
     Indication: MYCOBACTERIUM AVIUM COMPLEX INFECTION
     Route: 065
     Dates: end: 20160823
  7. CLARITHROMYCIN. [Concomitant]
     Active Substance: CLARITHROMYCIN
     Indication: MYCOBACTERIUM AVIUM COMPLEX INFECTION
     Route: 065
     Dates: end: 20160823
  8. SERTRALINE [Concomitant]
     Active Substance: SERTRALINE HYDROCHLORIDE
     Indication: DEPRESSION
     Dosage: 100 MG, ONCE A DAY MORNING
     Route: 065
  9. BEDAQUILINE [Suspect]
     Active Substance: BEDAQUILINE
     Indication: MYCOBACTERIUM AVIUM COMPLEX INFECTION
     Dosage: 400MG DAILY FOR 2 WEEKS THEN 200MG THREE TIMES A WEEK
     Route: 048
     Dates: start: 20160823, end: 20160827
  10. CLOFAZIMINE [Concomitant]
     Active Substance: CLOFAZIMINE
     Indication: MYCOBACTERIUM AVIUM COMPLEX INFECTION
     Route: 065
     Dates: end: 20160823
  11. CO-AMILOFRUSE [Concomitant]
     Active Substance: AMILORIDE\FUROSEMIDE
     Indication: OEDEMA PERIPHERAL
     Dosage: 5/40, MORNING
     Route: 065
     Dates: start: 20160819
  12. SERETIDE [Concomitant]
     Active Substance: FLUTICASONE PROPIONATE\SALMETEROL XINAFOATE
     Indication: RESPIRATORY DISORDER
     Dosage: 1 DF, TWO TIMES A DAY
     Route: 065
  13. SERETIDE [Concomitant]
     Active Substance: FLUTICASONE PROPIONATE\SALMETEROL XINAFOATE
     Dosage: 500 ACCUHALER
  14. SALBUTAMOL [Concomitant]
     Active Substance: ALBUTEROL
     Indication: RESPIRATORY DISORDER
     Dosage: 200 ?G, UNK
     Route: 065
  15. MORPHINE SULFATE. [Concomitant]
     Active Substance: MORPHINE SULFATE
     Indication: DYSPNOEA
     Dosage: 10MG/5ML
     Route: 065
     Dates: start: 20160823

REACTIONS (1)
  - Cardiac arrest [Fatal]
